FAERS Safety Report 5182351-9 (Version None)
Quarter: 2006Q4

REPORT INFORMATION
  Report Type: 
  Country: None (occurrence: None)
  Receive Date: 20061220
  Receipt Date: 20060807
  Transmission Date: 20070319
  Serious: No
  Sender: FDA-Public Use
  Company Number: US-GLAXOSMITHKLINE-A0615562A

PATIENT
  Age: 30 Year
  Sex: Female

DRUGS (2)
  1. COMMIT [Suspect]
     Dates: start: 20060807, end: 20060807
  2. NICODERM CQ [Suspect]

REACTIONS (7)
  - APPLICATION SITE BURN [None]
  - APPLICATION SITE RASH [None]
  - MALAISE [None]
  - PHARYNGOLARYNGEAL PAIN [None]
  - STOMACH DISCOMFORT [None]
  - TREMOR [None]
  - VOMITING [None]
